FAERS Safety Report 4843054-0 (Version None)
Quarter: 2005Q4

REPORT INFORMATION
  Report Type: 
  Country: None (occurrence: None)
  Receive Date: 20051130
  Receipt Date: 20051121
  Transmission Date: 20060501
  Serious: Yes (Hospitalization)
  Sender: FDA-Public Use
  Company Number: 2004-02-0296

PATIENT
  Age: 63 Year
  Sex: Male

DRUGS (8)
  1. REBETOL [Suspect]
     Indication: HEPATITIS C
     Dosage: 800 MG ORAL
     Route: 048
     Dates: start: 20020412, end: 20020927
  2. INTRON A [Suspect]
     Indication: HEPATITIS C
     Dosage: 6-3MU QD-TIW*
     Dates: start: 20020412, end: 20020401
  3. INTRON A [Suspect]
     Indication: HEPATITIS C
     Dosage: 6-3MU QD-TIW*
     Dates: start: 20020401, end: 20020927
  4. INTRON A [Suspect]
     Indication: HEPATITIS C
     Dosage: 6-3MU QD-TIW*
     Dates: start: 20030305
  5. IMIDAPRIL HCL [Concomitant]
  6. FLOMOX            (CEFCAPENE PIVOXIL HCL) [Concomitant]
  7. LOXONIN [Concomitant]
  8. PARIET (RABEPRAZOLE SODIUM) TABLETS [Concomitant]

REACTIONS (1)
  - IDIOPATHIC THROMBOCYTOPENIC PURPURA [None]
